FAERS Safety Report 20630331 (Version 1)
Quarter: 2022Q1

REPORT INFORMATION
  Report Type: Report from Study
  Country: IT (occurrence: IT)
  Receive Date: 20220324
  Receipt Date: 20220324
  Transmission Date: 20220423
  Serious: Yes (Hospitalization)
  Sender: FDA-Public Use
  Company Number: None

PATIENT
  Age: 97 Year
  Sex: Female

DRUGS (5)
  1. BISOPROLOL FUMARATE [Suspect]
     Active Substance: BISOPROLOL FUMARATE
     Indication: Hypertensive heart disease
     Dosage: 1DF
     Route: 048
     Dates: end: 20211212
  2. HYDROCHLOROTHIAZIDE\VALSARTAN [Suspect]
     Active Substance: HYDROCHLOROTHIAZIDE\VALSARTAN
     Indication: Hypertensive heart disease
     Dosage: COTAREG 160 MG / 12.5 MG TABLETS COATED WITH FILM, 1DF
     Route: 048
     Dates: end: 20211212
  3. OMEPRAZOLE [Concomitant]
     Active Substance: OMEPRAZOLE
  4. TICLOPIDINE [Concomitant]
     Active Substance: TICLOPIDINE
  5. ALLOPURINOL [Concomitant]
     Active Substance: ALLOPURINOL
     Dosage: ZYLORIC 100 MG TABLETS

REACTIONS (3)
  - Renal impairment [Recovering/Resolving]
  - Blood sodium decreased [Recovering/Resolving]
  - Hypochloraemia [Recovering/Resolving]

NARRATIVE: CASE EVENT DATE: 20211212
